FAERS Safety Report 8429222-X (Version None)
Quarter: 2012Q2

REPORT INFORMATION
  Report Type: 
  Country: None (occurrence: None)
  Receive Date: 20120612
  Receipt Date: 20120606
  Transmission Date: 20120825
  Serious: Yes (Hospitalization, Other)
  Sender: FDA-Public Use
  Company Number: PHHY2012MX049531

PATIENT
  Sex: Male

DRUGS (2)
  1. LOPRESSOR [Concomitant]
     Dosage: 1 DF, DAILY
  2. DIOVAN HCT [Suspect]
     Indication: HYPERTENSION
     Dosage: (160 MG  VALS AND 12.5 MG HYDRO), DAILY
     Dates: start: 20070601, end: 20120501

REACTIONS (4)
  - WEIGHT DECREASED [None]
  - MUSCULOSKELETAL DISORDER [None]
  - FALL [None]
  - SPINAL CORD DISORDER [None]
